FAERS Safety Report 14858634 (Version 1)
Quarter: 2018Q2

REPORT INFORMATION
  Report Type: Spontaneous
  Country: US (occurrence: US)
  Receive Date: 20180420
  Receipt Date: 20180420
  Transmission Date: 20180711
  Serious: No
  Sender: FDA-Public Use
  Company Number: None

PATIENT

DRUGS (5)
  1. SILDENAFIL. [Suspect]
     Active Substance: SILDENAFIL
  2. ATORVASTATIN CALCIUM. [Concomitant]
     Active Substance: ATORVASTATIN CALCIUM
  3. PAROXETINE. [Concomitant]
     Active Substance: PAROXETINE
  4. METOPROLOL TARTRATE. [Concomitant]
     Active Substance: METOPROLOL TARTRATE
  5. RISPERIDONE. [Concomitant]
     Active Substance: RISPERIDONE

REACTIONS (8)
  - Intervertebral disc compression [None]
  - Libido decreased [None]
  - Coma [None]
  - Cardiac operation [None]
  - Incontinence [None]
  - Erectile dysfunction [None]
  - Intervertebral disc protrusion [None]
  - Craniocerebral injury [None]
